FAERS Safety Report 21814648 (Version 1)
Quarter: 2023Q1

REPORT INFORMATION
  Report Type: Report from Study
  Country: US (occurrence: US)
  Receive Date: 20230104
  Receipt Date: 20230104
  Transmission Date: 20230418
  Serious: Yes (Other)
  Sender: FDA-Public Use
  Company Number: US-002147023-NVSC2022US301496

PATIENT
  Sex: Male

DRUGS (2)
  1. COSENTYX [Suspect]
     Active Substance: SECUKINUMAB
     Indication: Psoriasis
     Dosage: 150 MG, QMO
     Route: 058
  2. COSENTYX [Suspect]
     Active Substance: SECUKINUMAB
     Indication: Psoriatic arthropathy

REACTIONS (11)
  - Immunosuppression [Unknown]
  - Osteoarthritis [Unknown]
  - Eczema [Recovering/Resolving]
  - Musculoskeletal stiffness [Unknown]
  - Somnolence [Unknown]
  - Back pain [Unknown]
  - Stress [Unknown]
  - Skin abrasion [Unknown]
  - Skin exfoliation [Unknown]
  - Pigmentation disorder [Unknown]
  - Condition aggravated [Unknown]
